FAERS Safety Report 22101443 (Version 1)
Quarter: 2023Q1

REPORT INFORMATION
  Report Type: Spontaneous
  Country: DE (occurrence: DE)
  Receive Date: 20230316
  Receipt Date: 20230316
  Transmission Date: 20230418
  Serious: Yes (Hospitalization, Other)
  Sender: FDA-Public Use
  Company Number: None

PATIENT
  Age: 85 Year
  Sex: Male

DRUGS (2)
  1. GABAPENTIN [Suspect]
     Active Substance: GABAPENTIN
     Indication: Neuralgia
     Route: 065
  2. TILIDINE [Concomitant]
     Active Substance: TILIDINE
     Indication: Neuralgia
     Route: 065

REACTIONS (2)
  - Syncope [Recovered/Resolved]
  - Overdose [Unknown]
